FAERS Safety Report 24883555 (Version 4)
Quarter: 2025Q1

REPORT INFORMATION
  Report Type: Spontaneous
  Country: JP (occurrence: JP)
  Receive Date: 20250124
  Receipt Date: 20250304
  Transmission Date: 20250409
  Serious: Yes (Death, Other)
  Sender: GILEAD
  Company Number: JP-GILEAD-2024-0698091

PATIENT
  Age: 91 Year
  Sex: Male
  Weight: 56 kg

DRUGS (11)
  1. VEKLURY [Suspect]
     Active Substance: REMDESIVIR
     Indication: COVID-19
     Dosage: 200 MG, QD
     Route: 041
     Dates: start: 20241224, end: 20241224
  2. VEKLURY [Suspect]
     Active Substance: REMDESIVIR
     Dosage: 100 MG, QD
     Route: 041
     Dates: start: 20241225, end: 20241226
  3. AMINO ACIDS\DEXTROSE\ELECTROLYTES NOS\VITAMINS [Suspect]
     Active Substance: AMINO ACIDS\DEXTROSE\ELECTROLYTES NOS\VITAMINS
     Indication: Product used for unknown indication
     Dosage: 500 ML, BID
     Route: 041
     Dates: start: 20241214, end: 20241226
  4. POLARAMINE [Concomitant]
     Active Substance: DEXCHLORPHENIRAMINE MALEATE
  5. FUROSEMIDE [Concomitant]
     Active Substance: FUROSEMIDE
     Indication: Oedema
     Dosage: 20 MG, QD
     Route: 041
     Dates: start: 20241221, end: 20241226
  6. FUROSEMIDE [Concomitant]
     Active Substance: FUROSEMIDE
     Dosage: 10 MG, QD
     Route: 041
     Dates: start: 20241213, end: 20241226
  7. BROMHEXINE HYDROCHLORIDE [Concomitant]
     Active Substance: BROMHEXINE HYDROCHLORIDE
     Indication: Productive cough
     Dosage: 4 MG, BID
     Route: 041
     Dates: start: 20241218, end: 20241226
  8. CALCIUM CHLORIDE\MALTOSE\POTASSIUM CHLORIDE\SODIUM CHLORIDE\SODIUM LAC [Concomitant]
     Active Substance: CALCIUM CHLORIDE\MALTOSE\POTASSIUM CHLORIDE\SODIUM CHLORIDE\SODIUM LACTATE
     Dosage: 250 ML, BID
     Route: 041
     Dates: start: 20241218, end: 20241226
  9. VIMPAT [Concomitant]
     Active Substance: LACOSAMIDE
     Indication: Epilepsy
     Dosage: 100 MG, BID
     Route: 041
     Dates: start: 20241213, end: 20241226
  10. INSULIN GLARGINE [Concomitant]
     Active Substance: INSULIN GLARGINE
     Indication: Type 2 diabetes mellitus
     Dosage: 2 IU, QD
     Route: 058
     Dates: start: 20241214, end: 20241226
  11. ISOSORBIDE DINITRATE [Concomitant]
     Active Substance: ISOSORBIDE DINITRATE
     Indication: Angina pectoris
     Dosage: 1 DOSAGE FORM, QD
     Dates: start: 20241214, end: 20241226

REACTIONS (4)
  - Pneumonia [Fatal]
  - Diabetes mellitus [Unknown]
  - Hyperglycaemia [Unknown]
  - Dehydration [Unknown]

NARRATIVE: CASE EVENT DATE: 20241201
